FAERS Safety Report 23945173 (Version 1)
Quarter: 2024Q2

REPORT INFORMATION
  Report Type: Report from Study
  Country: IT (occurrence: IT)
  Receive Date: 20240606
  Receipt Date: 20240606
  Transmission Date: 20240715
  Serious: Yes (Hospitalization)
  Sender: FDA-Public Use
  Company Number: None

PATIENT
  Age: 89 Year
  Sex: Male

DRUGS (6)
  1. APIXABAN [Suspect]
     Active Substance: APIXABAN
     Indication: Product used for unknown indication
     Dosage: DOSAGGIO: 3.0 MG.
  2. RANEXA [Concomitant]
     Active Substance: RANOLAZINE
  3. ATORVASTATIN [Concomitant]
     Active Substance: ATORVASTATIN
  4. LASIX [Concomitant]
     Active Substance: FUROSEMIDE
  5. SILODOSIN [Concomitant]
     Active Substance: SILODOSIN
  6. ASPIRIN [Concomitant]
     Active Substance: ASPIRIN

REACTIONS (1)
  - Ischaemic stroke [Recovering/Resolving]

NARRATIVE: CASE EVENT DATE: 20210518
